FAERS Safety Report 6020246-9 (Version None)
Quarter: 2008Q4

REPORT INFORMATION
  Report Type: 
  Country: None (occurrence: None)
  Receive Date: 20081226
  Receipt Date: 20081216
  Transmission Date: 20090506
  Serious: Yes (Other)
  Sender: FDA-Public Use
  Company Number: PHHY2008BR32403

PATIENT
  Age: 38 Year
  Sex: Female

DRUGS (1)
  1. PARLODEL [Suspect]
     Indication: BREAST DISCHARGE
     Dosage: 2.5 MG, UNK
     Route: 048
     Dates: start: 20081214

REACTIONS (11)
  - BLOOD PRESSURE DECREASED [None]
  - DYSPNOEA [None]
  - FATIGUE [None]
  - FEELING HOT [None]
  - GAIT DISTURBANCE [None]
  - HEADACHE [None]
  - HYPOAESTHESIA [None]
  - NAUSEA [None]
  - NO THERAPEUTIC RESPONSE [None]
  - SOMNOLENCE [None]
  - VISION BLURRED [None]
